FAERS Safety Report 6006595-9 (Version None)
Quarter: 2008Q4

REPORT INFORMATION
  Report Type: 
  Country: None (occurrence: None)
  Receive Date: 20081217
  Receipt Date: 20081215
  Transmission Date: 20090506
  Serious: Yes (Other)
  Sender: FDA-Public Use
  Company Number: ES-BRISTOL-MYERS SQUIBB COMPANY-14444251

PATIENT
  Age: 82 Year
  Sex: Female
  Weight: 70 kg

DRUGS (7)
  1. SINEMET [Suspect]
     Indication: PARKINSON'S DISEASE
     Route: 048
     Dates: start: 20081009, end: 20081016
  2. FOSAMAX [Concomitant]
     Indication: OSTEOPOROSIS
     Route: 048
  3. HEMOVAS [Concomitant]
     Indication: SHOCK
     Route: 048
  4. HIDROFEROL [Concomitant]
     Indication: OSTEOPOROSIS
     Dosage: 10 DRINKABLE AMPOULES OF 1.5 ML
     Route: 048
  5. MODOPAR [Concomitant]
     Indication: PARKINSON'S DISEASE
     Dosage: 250MG-100TABS
     Route: 048
  6. ORFIDAL [Concomitant]
     Indication: INSOMNIA
     Dosage: 60TABS
     Route: 048
  7. PAROXETINE HCL [Concomitant]
     Indication: DEPRESSION
     Route: 048

REACTIONS (2)
  - HALLUCINATION [None]
  - MOBILITY DECREASED [None]
